FAERS Safety Report 5733070-9 (Version None)
Quarter: 2008Q2

REPORT INFORMATION
  Report Type: 
  Country: None (occurrence: None)
  Receive Date: 20080509
  Receipt Date: 20080506
  Transmission Date: 20081010
  Serious: Yes (Other)
  Sender: FDA-Public Use
  Company Number: GB-BRISTOL-MYERS SQUIBB COMPANY-14181598

PATIENT
  Age: 82 Year
  Sex: Male

DRUGS (4)
  1. SINEMET [Suspect]
  2. EXELON [Concomitant]
  3. PILOCARPINE HCL [Concomitant]
     Dosage: EYE DROPS
  4. TIMOPTIC [Concomitant]
     Dosage: EYE DROPS

REACTIONS (1)
  - INTRAOCULAR PRESSURE INCREASED [None]
